FAERS Safety Report 15133461 (Version 10)
Quarter: 2022Q1

REPORT INFORMATION
  Report Type: Spontaneous
  Country: US (occurrence: US)
  Receive Date: 20180712
  Receipt Date: 20220104
  Transmission Date: 20220423
  Serious: No
  Sender: FDA-Public Use
  Company Number: US-PFIZER INC-2018280295

PATIENT
  Age: 46 Year
  Sex: Female
  Weight: 59 kg

DRUGS (4)
  1. LYRICA [Suspect]
     Active Substance: PREGABALIN
     Indication: Fibromyalgia
     Dosage: 150 MG, 3X/DAY (HAS BEEN ON PREGABALIN FOR 8 YEARS)
     Route: 048
  2. LYRICA [Suspect]
     Active Substance: PREGABALIN
     Indication: Nerve injury
     Dosage: 150 MG, 3X/DAY
     Route: 048
     Dates: start: 201804, end: 20180630
  3. LYRICA [Suspect]
     Active Substance: PREGABALIN
     Indication: Back injury
     Dosage: 150 MG, 3X/DAY
     Route: 048
     Dates: end: 2019
  4. IBUPROFEN [Concomitant]
     Active Substance: IBUPROFEN
     Dosage: UNK (HAD BEEN TAKING FOR OVER 8 YEARS)

REACTIONS (6)
  - Maternal exposure during pregnancy [Unknown]
  - Malaise [Not Recovered/Not Resolved]
  - Hypoaesthesia [Not Recovered/Not Resolved]
  - Insomnia [Not Recovered/Not Resolved]
  - Gait disturbance [Unknown]
  - Product prescribing error [Unknown]

NARRATIVE: CASE EVENT DATE: 20180703
